FAERS Safety Report 7410987-0 (Version None)
Quarter: 2011Q2

REPORT INFORMATION
  Report Type: 
  Country: None (occurrence: None)
  Receive Date: 20110413
  Receipt Date: 20110331
  Transmission Date: 20111010
  Serious: Yes (Hospitalization)
  Sender: FDA-Public Use
  Company Number: DE-TYCO HEALTHCARE/MALLINCKRODT-T201100741

PATIENT
  Sex: Female

DRUGS (2)
  1. EXALGO [Suspect]
     Indication: PAIN
     Dosage: 16 MG + 8 MG , BID
     Route: 048
  2. EXALGO [Suspect]
     Dosage: 8 MG + 8 MG + 8 MG, BID

REACTIONS (3)
  - DRUG LEVEL INCREASED [None]
  - DISORIENTATION [None]
  - CONFUSIONAL STATE [None]
